FAERS Safety Report 9422112 (Version 1)
Quarter: 2013Q3

REPORT INFORMATION
  Report Type: Spontaneous
  Country: BR (occurrence: BR)
  Receive Date: 20130726
  Receipt Date: 20130726
  Transmission Date: 20140515
  Serious: Yes (Other)
  Sender: FDA-Public Use
  Company Number: BR-AMGEN-BRASP2013033326

PATIENT
  Age: 53 Year
  Sex: Female
  Weight: 80 kg

DRUGS (3)
  1. ENBREL [Suspect]
     Indication: PSORIATIC ARTHROPATHY
     Dosage: 50 MG, 1X/WEEK
     Route: 058
     Dates: start: 20130405
  2. PANTOPRAZOLE [Concomitant]
     Dosage: 20 MG, 1X/DAY
  3. FOLIC ACID [Concomitant]
     Dosage: 5 MG, 3X/WEEK

REACTIONS (5)
  - Abdominal pain upper [Unknown]
  - Abdominal rigidity [Unknown]
  - Nausea [Unknown]
  - Chills [Unknown]
  - Injection site haematoma [Unknown]
